FAERS Safety Report 6181515 (Version 25)
Quarter: 2013Q4

REPORT INFORMATION
  Report Type: Spontaneous
  Country: US (occurrence: US)
  Receive Date: 20061208
  Receipt Date: 20131226
  Transmission Date: 20140711
  Serious: Yes (Death, Other)
  Sender: FDA-Public Use
  Company Number: PHEH2006US14752

PATIENT
  Age: 49 Year
  Sex: Female

DRUGS (16)
  1. AREDIA [Suspect]
     Indication: METASTASES TO BONE
     Dosage: 90 MG, EVERY 4 WEEKS
  2. ZOMETA [Suspect]
     Indication: METASTASES TO BONE
     Dosage: 4 MG,
  3. TAMOXIFEN [Concomitant]
     Dosage: 20 MG,
     Dates: start: 2008
  4. CHEMOTHERAPEUTICS NOS [Concomitant]
     Dates: start: 2001
  5. CELEBREX [Concomitant]
     Dosage: 200 MG,
     Dates: start: 2002
  6. SYNTHROID [Concomitant]
     Dosage: 0.125 UG, UNK
     Dates: start: 2002
  7. PAXIL [Concomitant]
     Dosage: 10 MG,
  8. FLONASE [Concomitant]
     Route: 006
     Dates: start: 2004
  9. COMBIVENT                               /GFR/ [Concomitant]
     Route: 055
  10. AMBIEN [Concomitant]
  11. FASLODEX [Concomitant]
     Dosage: 250 MG, UNK
     Dates: start: 200304
  12. AVASTIN [Concomitant]
  13. TAXOL [Concomitant]
  14. SUDAFED [Concomitant]
  15. PONTOCAINE [Concomitant]
     Route: 061
  16. AFRIN [Concomitant]
     Route: 061

REACTIONS (125)
  - Death [Fatal]
  - Osteonecrosis of jaw [Unknown]
  - Osteomyelitis [Unknown]
  - Sinusitis [Unknown]
  - Sinus headache [Unknown]
  - Facial pain [Unknown]
  - Gingival ulceration [Unknown]
  - Infection [Unknown]
  - Abscess [Unknown]
  - Purulence [Unknown]
  - Purulent discharge [Unknown]
  - Pyrexia [Unknown]
  - Oral disorder [Unknown]
  - Bone disorder [Unknown]
  - Dental caries [Unknown]
  - Toothache [Unknown]
  - Oroantral fistula [Unknown]
  - Pain [Unknown]
  - Injury [Unknown]
  - Subcutaneous abscess [Unknown]
  - Mucosal atrophy [Unknown]
  - Wound dehiscence [Unknown]
  - Metastases to lung [Unknown]
  - Pleural effusion [Recovered/Resolved]
  - Metastases to liver [Unknown]
  - Metastases to bone [Unknown]
  - Lymphadenopathy [Unknown]
  - Deafness [Unknown]
  - Laryngeal oedema [Unknown]
  - Femur fracture [Unknown]
  - Spondylolisthesis [Unknown]
  - Vertebral foraminal stenosis [Unknown]
  - Gastrooesophageal reflux disease [Unknown]
  - Anaemia [Unknown]
  - Mouth cyst [Unknown]
  - Dysphonia [Unknown]
  - Blood triglycerides increased [Unknown]
  - Total cholesterol/HDL ratio decreased [Unknown]
  - Blood calcium increased [Unknown]
  - Protein total decreased [Unknown]
  - Blood iron decreased [Unknown]
  - Nerve root compression [Unknown]
  - Spinal osteoarthritis [Unknown]
  - Hip fracture [Unknown]
  - Thrombosis [Unknown]
  - Dyspnoea [Unknown]
  - Pericardial effusion [Unknown]
  - Exercise tolerance decreased [Unknown]
  - Palpitations [Unknown]
  - Left ventricular dysfunction [Unknown]
  - Urinary tract infection [Unknown]
  - Pulmonary embolism [Unknown]
  - Hypokalaemia [Unknown]
  - Asthenia [Unknown]
  - Gait disturbance [Unknown]
  - Cerebrovascular disorder [Unknown]
  - Osteoarthritis [Unknown]
  - Ligament rupture [Unknown]
  - Atelectasis [Unknown]
  - Oedema peripheral [Unknown]
  - Pathological fracture [Unknown]
  - Hypertrophy [Unknown]
  - Facet joint syndrome [Unknown]
  - Brain cancer metastatic [Unknown]
  - Convulsion [Unknown]
  - Mental status changes [Unknown]
  - Aortic arteriosclerosis [Unknown]
  - Aortic calcification [Unknown]
  - Pneumothorax [Unknown]
  - Pulmonary oedema [Unknown]
  - Pneumonia [Unknown]
  - Lung consolidation [Unknown]
  - Injection site granuloma [Unknown]
  - Phlebolith [Unknown]
  - Thrombophlebitis superficial [Unknown]
  - Central nervous system lesion [Unknown]
  - Ascites [Unknown]
  - Altered state of consciousness [Unknown]
  - Spinal fracture [Unknown]
  - Intervertebral disc degeneration [Unknown]
  - Hypothyroidism [Unknown]
  - Metastases to spine [Unknown]
  - Vocal cord paralysis [Unknown]
  - Primary sequestrum [Unknown]
  - Anxiety [Unknown]
  - Abdominal pain [Unknown]
  - Musculoskeletal chest pain [Unknown]
  - Bronchitis [Unknown]
  - Metastases to lymph nodes [Unknown]
  - Alopecia [Unknown]
  - Gingival abscess [Unknown]
  - Dysphagia [Unknown]
  - Ligament sprain [Unknown]
  - Lordosis [Unknown]
  - Intervertebral disc protrusion [Unknown]
  - Ear pain [Unknown]
  - Otitis media acute [Unknown]
  - Rectal haemorrhage [Unknown]
  - Dyspepsia [Unknown]
  - Tinea infection [Unknown]
  - Nasal septum perforation [Recovered/Resolved]
  - Lumbar vertebral fracture [Unknown]
  - Lymphadenopathy mediastinal [Recovered/Resolved]
  - Nasal septum deviation [Unknown]
  - Ear injury [Unknown]
  - Ear haemorrhage [Unknown]
  - Tooth infection [Unknown]
  - Dizziness [Unknown]
  - Upper respiratory tract infection [Unknown]
  - Barotrauma [Unknown]
  - Exposed bone in jaw [Unknown]
  - Rhinorrhoea [Unknown]
  - Fluid overload [Unknown]
  - Osteosclerosis [Unknown]
  - Haemorrhoids [Unknown]
  - Metastases to pleura [Unknown]
  - Spinal compression fracture [Unknown]
  - Spinal cord compression [Unknown]
  - Upper-airway cough syndrome [Unknown]
  - Tachycardia [Unknown]
  - Nasal congestion [Unknown]
  - Back pain [Unknown]
  - Decubitus ulcer [Unknown]
  - Abasia [Unknown]
  - Skin oedema [Unknown]
